FAERS Safety Report 12615414 (Version 2)
Quarter: 2016Q3

REPORT INFORMATION
  Report Type: Spontaneous
  Country: JP (occurrence: JP)
  Receive Date: 20160802
  Receipt Date: 20160805
  Transmission Date: 20161109
  Serious: Yes (Death, Hospitalization, Other)
  Sender: FDA-Public Use
  Company Number: JP-ELI_LILLY_AND_COMPANY-JP201607013267

PATIENT
  Age: 50 Year
  Sex: Male

DRUGS (1)
  1. GEMZAR [Suspect]
     Active Substance: GEMCITABINE HYDROCHLORIDE
     Indication: ADENOCARCINOMA PANCREAS
     Dosage: UNK UNK, OTHER
     Route: 042
     Dates: start: 2014

REACTIONS (8)
  - Cholangitis [Unknown]
  - Leukopenia [Unknown]
  - Cerebral infarction [Unknown]
  - Tumour invasion [Unknown]
  - Cholangitis [Recovered/Resolved]
  - Bacteraemia [Unknown]
  - Death [Fatal]
  - Intestinal haemorrhage [Unknown]

NARRATIVE: CASE EVENT DATE: 201502
